FAERS Safety Report 5224178-5 (Version None)
Quarter: 2007Q1

REPORT INFORMATION
  Report Type: 
  Country: None (occurrence: None)
  Receive Date: 20061201
  Receipt Date: 20060906
  Transmission Date: 20070707
  Serious: No
  Sender: FDA-Public Use
  Company Number: 2006PV020849

PATIENT
  Age: 57 Year
  Sex: Male
  Weight: 165.5629 kg

DRUGS (4)
  1. BYETTA [Suspect]
     Indication: DIABETES MELLITUS NON-INSULIN-DEPENDENT
     Dosage: 5 MCG;BID;SC
     Route: 058
     Dates: start: 20060902
  2. METFORMIN HCL [Concomitant]
  3. AMARYL [Concomitant]
  4. AVANDIA [Concomitant]

REACTIONS (6)
  - DYSPEPSIA [None]
  - ERUCTATION [None]
  - FATIGUE [None]
  - INJECTION SITE BRUISING [None]
  - INJECTION SITE ERYTHEMA [None]
  - INJECTION SITE PUSTULE [None]
